FAERS Safety Report 14315005 (Version 1)
Quarter: 2017Q4

REPORT INFORMATION
  Report Type: Report from Study
  Country: CA (occurrence: CA)
  Receive Date: 20171221
  Receipt Date: 20171221
  Transmission Date: 20180321
  Serious: Yes (Other)
  Sender: FDA-Public Use
  Company Number: CA-JNJFOC-20171009761

PATIENT
  Age: 21 Year
  Sex: Male
  Weight: 59.2 kg

DRUGS (3)
  1. STELARA [Suspect]
     Active Substance: USTEKINUMAB
     Indication: CROHN^S DISEASE
     Route: 058
     Dates: start: 20171010
  2. STELARA [Suspect]
     Active Substance: USTEKINUMAB
     Indication: CROHN^S DISEASE
     Dosage: DELAYED BY 4 WEEKS
     Route: 058
     Dates: start: 20171214
  3. STELARA [Suspect]
     Active Substance: USTEKINUMAB
     Indication: CROHN^S DISEASE
     Route: 058
     Dates: start: 20170620

REACTIONS (7)
  - General physical health deterioration [Unknown]
  - Weight decreased [Unknown]
  - Fatigue [Unknown]
  - Product use issue [Unknown]
  - Abdominal pain [Recovered/Resolved]
  - Intestinal resection [Recovered/Resolved]
  - Off label use [Unknown]

NARRATIVE: CASE EVENT DATE: 20170620
